FAERS Safety Report 9187265 (Version 1)
Quarter: 2013Q1

REPORT INFORMATION
  Report Type: Spontaneous
  Country: US (occurrence: US)
  Receive Date: 20130325
  Receipt Date: 20130325
  Transmission Date: 20140127
  Serious: No
  Sender: FDA-Public Use
  Company Number: US-PFIZER INC-2013096390

PATIENT
  Age: 52 Year
  Sex: Female
  Weight: 90.7 kg

DRUGS (10)
  1. LYRICA [Suspect]
     Indication: FIBROMYALGIA
     Dosage: 300 MG (ONE CAPSULE OF 100 MG IN THE MORNING AND TWO CAPSULES OF 100 MG IN THE EVENING)
     Route: 048
     Dates: start: 201211, end: 201302
  2. LYRICA [Suspect]
     Indication: NEUROPATHY PERIPHERAL
  3. CITALOPRAM [Concomitant]
     Dosage: 20 MG, UNK
  4. ATIVAN [Concomitant]
     Dosage: 1 MG, UNK
  5. LEVOTHYROXINE [Concomitant]
     Dosage: 0.075 MG, UNK
  6. OMEPRAZOLE [Concomitant]
     Dosage: 20 MG, UNK
  7. SINGULAIR [Concomitant]
     Dosage: 10 MG, UNK
  8. CELEBREX [Concomitant]
     Indication: ARTHRITIS
     Dosage: 20 MG, 1X/DAY
     Dates: start: 201211
  9. BUPROPION [Concomitant]
     Dosage: 300 MG, UNK
  10. ALLEGRA [Concomitant]
     Dosage: UNK

REACTIONS (2)
  - Feeling abnormal [Not Recovered/Not Resolved]
  - Pain [Not Recovered/Not Resolved]
